FAERS Safety Report 8543856-3 (Version None)
Quarter: 2012Q3

REPORT INFORMATION
  Report Type: 
  Country: None (occurrence: None)
  Receive Date: 20120727
  Receipt Date: 20120724
  Transmission Date: 20120928
  Serious: Yes (Other)
  Sender: FDA-Public Use
  Company Number: PHHY2012MX064505

PATIENT
  Age: 88 Year
  Sex: Female

DRUGS (1)
  1. ZOLEDRONOC ACID [Suspect]
     Indication: OSTEOPOROSIS
     Dosage: 5 MG / 100 ML PER YEAR
     Route: 042
     Dates: start: 20090901

REACTIONS (2)
  - HIP FRACTURE [None]
  - DRUG INEFFECTIVE [None]
